FAERS Safety Report 7587707-2 (Version None)
Quarter: 2011Q3

REPORT INFORMATION
  Report Type: 
  Country: None (occurrence: None)
  Receive Date: 20110704
  Receipt Date: 20110621
  Transmission Date: 20111222
  Serious: Yes (Hospitalization, Other)
  Sender: FDA-Public Use
  Company Number: US-ELI_LILLY_AND_COMPANY-US201106003404

PATIENT
  Sex: Male

DRUGS (4)
  1. CLOZAPINE [Concomitant]
     Dosage: 600 MG, QD
  2. EFFEXOR [Concomitant]
     Dosage: 75 MG, UNK
  3. ZYPREXA ZYDIS [Suspect]
     Indication: SCHIZOPHRENIA
     Dosage: 10 MG, BID
     Dates: start: 20110501
  4. ATIVAN [Concomitant]

REACTIONS (14)
  - UNEVALUABLE EVENT [None]
  - DRUG INEFFECTIVE [None]
  - SCREAMING [None]
  - SUICIDAL BEHAVIOUR [None]
  - ABNORMAL BEHAVIOUR [None]
  - DEPRESSED MOOD [None]
  - AGGRESSION [None]
  - NEGATIVE THOUGHTS [None]
  - MALAISE [None]
  - COMMUNICATION DISORDER [None]
  - SUICIDAL IDEATION [None]
  - HALLUCINATION, AUDITORY [None]
  - SCHIZOPHRENIFORM DISORDER [None]
  - DRUG HYPERSENSITIVITY [None]
